FAERS Safety Report 5517468-X (Version None)
Quarter: 2007Q4

REPORT INFORMATION
  Report Type: 
  Country: None (occurrence: None)
  Receive Date: 20071114
  Receipt Date: 20071102
  Transmission Date: 20080405
  Serious: Yes (Life-Threatening, Other)
  Sender: FDA-Public Use
  Company Number: US-PFIZER INC-2004082357

PATIENT
  Sex: Female

DRUGS (1)
  1. DILANTIN [Suspect]
     Indication: CONVULSION
     Route: 048

REACTIONS (13)
  - ANTICONVULSANT DRUG LEVEL ABOVE THERAPEUTIC [None]
  - BRAIN NEOPLASM [None]
  - CONVULSION [None]
  - FAECAL INCONTINENCE [None]
  - INCOHERENT [None]
  - LACTOSE INTOLERANCE [None]
  - MIGRAINE WITH AURA [None]
  - NAUSEA [None]
  - SEDATION [None]
  - SOMNOLENCE [None]
  - STRESS [None]
  - SURGERY [None]
  - VOMITING [None]
